FAERS Safety Report 4550275-3 (Version None)
Quarter: 2005Q1

REPORT INFORMATION
  Report Type: 
  Country: None (occurrence: None)
  Receive Date: 20050111
  Receipt Date: 20050111
  Transmission Date: 20050727
  Serious: Yes (Life-Threatening, Hospitalization)
  Sender: FDA-Public Use
  Company Number: None

PATIENT
  Sex: Male

DRUGS (7)
  1. AMIODARONE HCL [Suspect]
     Indication: ATRIAL FIBRILLATION
     Dosage: 250 MG PO BID
     Route: 048
     Dates: start: 20040922
  2. AMIODARONE HCL [Suspect]
     Indication: PROPHYLAXIS
     Dosage: 250 MG PO BID
     Route: 048
     Dates: start: 20040922
  3. AMIODARONE HCL [Suspect]
     Indication: ATRIAL FIBRILLATION
     Dosage: 250 MG PO BID
     Route: 048
     Dates: start: 20041005
  4. AMIODARONE HCL [Suspect]
     Indication: PROPHYLAXIS
     Dosage: 250 MG PO BID
     Route: 048
     Dates: start: 20041005
  5. METOPROLOL [Concomitant]
  6. ASCRIPTION [Concomitant]
  7. VICODIN [Concomitant]

REACTIONS (1)
  - PNEUMONITIS [None]
